FAERS Safety Report 20811579 (Version 2)
Quarter: 2022Q2

REPORT INFORMATION
  Report Type: Spontaneous
  Country: RO (occurrence: RO)
  Receive Date: 20220510
  Receipt Date: 20220609
  Transmission Date: 20220720
  Serious: Yes (Life-Threatening, Hospitalization, Other)
  Sender: FDA-Public Use
  Company Number: RO-MLMSERVICE-20220502-3535983-1

PATIENT
  Age: 36 Year
  Sex: Female

DRUGS (5)
  1. GRANISETRON [Suspect]
     Active Substance: GRANISETRON
     Indication: Prophylaxis of nausea and vomiting
     Dosage: 1 MG
     Route: 065
     Dates: start: 202006
  2. FENTANYL [Suspect]
     Active Substance: FENTANYL
     Indication: Induction of anaesthesia
     Dosage: 0.2 UG/KG
     Route: 065
     Dates: start: 20200622
  3. TRAMADOL [Suspect]
     Active Substance: TRAMADOL
     Indication: Postoperative analgesia
     Dosage: 100 MG
     Route: 065
     Dates: start: 202006
  4. ACETAMINOPHEN [Concomitant]
     Active Substance: ACETAMINOPHEN
     Indication: Postoperative analgesia
     Dosage: 1 G
     Route: 065
     Dates: start: 202006
  5. METAMIZOLE [Concomitant]
     Active Substance: METAMIZOLE
     Indication: Postoperative analgesia
     Dosage: 1 G
     Route: 065
     Dates: start: 202006

REACTIONS (3)
  - Disseminated intravascular coagulation [Recovered/Resolved]
  - Serotonin syndrome [Recovered/Resolved]
  - Product use in unapproved indication [Unknown]

NARRATIVE: CASE EVENT DATE: 20200601
